FAERS Safety Report 25367060 (Version 2)
Quarter: 2025Q3

REPORT INFORMATION
  Report Type: Report from Study
  Country: US (occurrence: US)
  Receive Date: 20250528
  Receipt Date: 20250813
  Transmission Date: 20251021
  Serious: Yes (Other)
  Sender: UCB
  Company Number: US-UCBSA-2025030965

PATIENT
  Age: 80 Year
  Sex: Female

DRUGS (4)
  1. LACOSAMIDE [Suspect]
     Active Substance: LACOSAMIDE
     Indication: Seizure
     Dosage: 100 MILLIGRAM, 2X/DAY (BID)
  2. ESCITALOPRAM [Concomitant]
     Active Substance: ESCITALOPRAM OXALATE
     Indication: Depression
     Dosage: 10 MILLIGRAM, 2X/DAY (BID)
     Route: 048
  3. VITAMIN C [Concomitant]
     Active Substance: ASCORBIC ACID
     Indication: Hypovitaminosis
     Dosage: 1000 MILLIGRAM, ONCE DAILY (QD)
     Route: 048
  4. FLUTICASONE PROPIONATE\SALMETEROL XINAFOATE [Concomitant]
     Active Substance: FLUTICASONE PROPIONATE\SALMETEROL XINAFOATE
     Indication: Asthma
     Route: 048
     Dates: start: 202407

REACTIONS (2)
  - Cataract [Recovered/Resolved]
  - Cataract operation [Recovered/Resolved]

NARRATIVE: CASE EVENT DATE: 20250501
